FAERS Safety Report 11957343 (Version 1)
Quarter: 2016Q1

REPORT INFORMATION
  Report Type: Spontaneous
  Country: VE (occurrence: VE)
  Receive Date: 20160126
  Receipt Date: 20160126
  Transmission Date: 20160526
  Serious: Yes (Hospitalization, Other)
  Sender: FDA-Public Use
  Company Number: PHHY2016VE009952

PATIENT
  Sex: Female

DRUGS (10)
  1. FORADIL [Suspect]
     Active Substance: FORMOTEROL FUMARATE
     Indication: ASTHMA
  2. MIFLONIDE [Suspect]
     Active Substance: BUDESONIDE
     Indication: ASTHMA
  3. ESOMEPRAZOLE [Concomitant]
     Active Substance: ESOMEPRAZOLE
     Indication: PROPHYLAXIS AGAINST GASTROINTESTINAL ULCER
     Dosage: 1 DF, QD
     Route: 065
  4. ALOVENT//IPRATROPIUM BROMIDE [Concomitant]
     Indication: PRODUCT USED FOR UNKNOWN INDICATION
     Dosage: (NEBULIZATION)
     Route: 055
  5. AMBROCLAR [Concomitant]
     Indication: LUNG DISORDER
     Dosage: 2 DF, QD
     Route: 065
  6. MIFLONIDE [Suspect]
     Active Substance: BUDESONIDE
     Indication: PNEUMONIA
     Dosage: 200 UG, QID
     Route: 055
     Dates: start: 201508
  7. LASIX [Concomitant]
     Active Substance: FUROSEMIDE
     Indication: RENAL FAILURE
  8. FORADIL [Suspect]
     Active Substance: FORMOTEROL FUMARATE
     Indication: PNEUMONIA
     Dosage: UNK
     Route: 065
  9. LASIX [Concomitant]
     Active Substance: FUROSEMIDE
     Indication: FLUID RETENTION
     Dosage: 1 DF, QD
     Route: 065
  10. MILAX [Concomitant]
     Indication: CONSTIPATION
     Dosage: 2 DF, QD
     Route: 065

REACTIONS (5)
  - Asthmatic crisis [Not Recovered/Not Resolved]
  - Dyspnoea [Not Recovered/Not Resolved]
  - Product use issue [Unknown]
  - Pulmonary calcification [Not Recovered/Not Resolved]
  - Syncope [Not Recovered/Not Resolved]
